FAERS Safety Report 19609207 (Version 2)
Quarter: 2021Q3

REPORT INFORMATION
  Report Type: Report from Study
  Country: CA (occurrence: CA)
  Receive Date: 20210726
  Receipt Date: 20210929
  Transmission Date: 20211014
  Serious: Yes (Other)
  Sender: FDA-Public Use
  Company Number: CA-ORION CORPORATION ORION PHARMA-21_00015317

PATIENT
  Age: 41 Year
  Sex: Female

DRUGS (12)
  1. HUMIRA [Concomitant]
     Active Substance: ADALIMUMAB
     Route: 065
  2. DESOXIMETASONE. [Concomitant]
     Active Substance: DESOXIMETASONE
     Route: 058
  3. LEFLUNOMIDE. [Suspect]
     Active Substance: LEFLUNOMIDE
     Route: 048
  4. METHOTREXATE (TRADE NAME UNKNOWN) [Suspect]
     Active Substance: METHOTREXATE
     Indication: PRODUCT USED FOR UNKNOWN INDICATION
     Route: 048
  5. METHOTREXATE (TRADE NAME UNKNOWN) [Suspect]
     Active Substance: METHOTREXATE
     Route: 058
  6. LEFLUNOMIDE. [Suspect]
     Active Substance: LEFLUNOMIDE
     Indication: PRODUCT USED FOR UNKNOWN INDICATION
     Route: 065
  7. NAPROXEN. [Concomitant]
     Active Substance: NAPROXEN
     Route: 048
  8. CELEBREX [Concomitant]
     Active Substance: CELECOXIB
     Route: 048
  9. METHOTREXATE (TRADE NAME UNKNOWN) [Suspect]
     Active Substance: METHOTREXATE
     Route: 065
  10. LEFLUNOMIDE. [Suspect]
     Active Substance: LEFLUNOMIDE
     Route: 058
  11. CARBAMAZEPINE. [Concomitant]
     Active Substance: CARBAMAZEPINE
     Indication: EPILEPSY
     Route: 065
  12. PREDNISONE. [Concomitant]
     Active Substance: PREDNISONE
     Route: 048

REACTIONS (12)
  - Psoriasis [Unknown]
  - Psoriatic arthropathy [Unknown]
  - Dysstasia [Unknown]
  - Insomnia [Unknown]
  - Pain [Unknown]
  - Seizure [Unknown]
  - Joint swelling [Unknown]
  - Urticaria [Unknown]
  - Treatment failure [Unknown]
  - Arthropathy [Unknown]
  - Gait disturbance [Unknown]
  - Grip strength decreased [Unknown]
